FAERS Safety Report 6981266-0 (Version None)
Quarter: 2010Q3

REPORT INFORMATION
  Report Type: 
  Country: None (occurrence: None)
  Receive Date: 20100825
  Receipt Date: 20090924
  Transmission Date: 20110219
  Serious: Yes (Hospitalization, Other)
  Sender: FDA-Public Use
  Company Number: 09US001205

PATIENT
  Age: 32 Year
  Sex: Female
  Weight: 55.8 kg

DRUGS (8)
  1. PEXEVA [Suspect]
     Indication: PANIC ATTACK
     Dosage: 60 MG, QD, ORAL
     Route: 048
     Dates: start: 20080901, end: 20090915
  2. VYVANSE [Concomitant]
  3. XANAX [Concomitant]
  4. ULTRAM [Concomitant]
  5. VOLTAREN [Concomitant]
  6. VISTARIL [Concomitant]
  7. SEROQUEL [Concomitant]
  8. TRAZODONE HCL [Concomitant]

REACTIONS (14)
  - ABNORMAL BEHAVIOUR [None]
  - BLOOD PRESSURE INCREASED [None]
  - DELUSION [None]
  - DRUG ABUSE [None]
  - DRUG WITHDRAWAL SYNDROME [None]
  - FATIGUE [None]
  - FIBROMYALGIA [None]
  - HYPOTENSION [None]
  - INSOMNIA [None]
  - MUSCLE SPASMS [None]
  - PANIC ATTACK [None]
  - SWELLING FACE [None]
  - URINE ANALYSIS ABNORMAL [None]
  - VIRAL INFECTION [None]
